FAERS Safety Report 19690396 (Version 1)
Quarter: 2021Q3

REPORT INFORMATION
  Report Type: Spontaneous
  Country: AU (occurrence: AU)
  Receive Date: 20210812
  Receipt Date: 20210812
  Transmission Date: 20211014
  Serious: Yes (Other)
  Sender: FDA-Public Use
  Company Number: AU-GILEAD-2021-0531229

PATIENT
  Age: 55 Year
  Sex: Male
  Weight: 88 kg

DRUGS (5)
  1. EPCLUSA [Suspect]
     Active Substance: SOFOSBUVIR\VELPATASVIR
     Indication: HEPATITIS C
     Dosage: 1 DOSAGE FORM
     Route: 048
     Dates: start: 20210319, end: 20210604
  2. NEXIUM I.V. [Concomitant]
     Active Substance: ESOMEPRAZOLE SODIUM
  3. MIRTAZEPINE TEVA [Concomitant]
     Active Substance: MIRTAZAPINE
  4. BACTRIM [Concomitant]
     Active Substance: SULFAMETHOXAZOLE\TRIMETHOPRIM
  5. THIAMINE. [Concomitant]
     Active Substance: THIAMINE

REACTIONS (4)
  - Oral herpes [Unknown]
  - Nasal ulcer [Unknown]
  - Stomatitis [Unknown]
  - Laryngitis fungal [Recovered/Resolved]

NARRATIVE: CASE EVENT DATE: 20210502
